FAERS Safety Report 9142729 (Version 1)
Quarter: 2013Q1

REPORT INFORMATION
  Report Type: Spontaneous
  Country: IT (occurrence: IT)
  Receive Date: 20130306
  Receipt Date: 20130306
  Transmission Date: 20140127
  Serious: Yes (Other)
  Sender: FDA-Public Use
  Company Number: IT-TEVA-389859ISR

PATIENT
  Age: 78 Year
  Sex: Male
  Weight: 75 kg

DRUGS (2)
  1. OXALIPLATINO [Suspect]
     Indication: COLON CANCER METASTATIC
     Dosage: 170 MILLIGRAM DAILY;
     Route: 042
     Dates: start: 20130220, end: 20130220
  2. ERBITUX [Concomitant]
     Indication: COLON CANCER METASTATIC
     Dosage: 540 MILLIGRAM DAILY;
     Route: 042
     Dates: start: 20130220, end: 20130220

REACTIONS (2)
  - Hyperpyrexia [Recovered/Resolved]
  - Chills [Recovered/Resolved]
